FAERS Safety Report 6733957-4 (Version None)
Quarter: 2010Q2

REPORT INFORMATION
  Report Type: 
  Country: None (occurrence: None)
  Receive Date: 20100518
  Receipt Date: 20100503
  Transmission Date: 20101027
  Serious: Yes (Hospitalization)
  Sender: FDA-Public Use
  Company Number: 7003916

PATIENT
  Age: 63 Year
  Sex: Female

DRUGS (1)
  1. REBIF [Suspect]
     Dosage: 44 MCG, 3 IN 1 WK, SUBCUTANEOUS
     Route: 058
     Dates: start: 20091218

REACTIONS (6)
  - ASTHENIA [None]
  - DIARRHOEA [None]
  - HYPERTENSION [None]
  - MALAISE [None]
  - NAUSEA [None]
  - VOMITING [None]
